FAERS Safety Report 6405440-7 (Version None)
Quarter: 2009Q4

REPORT INFORMATION
  Report Type: 
  Country: None (occurrence: None)
  Receive Date: 20091016
  Receipt Date: 20091016
  Transmission Date: 20100525
  Serious: Yes (Hospitalization, Other)
  Sender: FDA-Public Use
  Company Number: None

PATIENT
  Age: 84 Year
  Sex: Female
  Weight: 56.246 kg

DRUGS (1)
  1. RECLAST [Suspect]
     Indication: OSTEOPOROSIS
     Dosage: TO LAST 1 YEAR

REACTIONS (9)
  - ANXIETY [None]
  - ASTHENIA [None]
  - DECREASED ACTIVITY [None]
  - DYSGRAPHIA [None]
  - FATIGUE [None]
  - MUSCLE FATIGUE [None]
  - NIGHT SWEATS [None]
  - QUALITY OF LIFE DECREASED [None]
  - TREMOR [None]
